FAERS Safety Report 8789407 (Version 1)
Quarter: 2012Q4

REPORT INFORMATION
  Report Type: Spontaneous
  Country: US (occurrence: None)
  Receive Date: 20120905
  Receipt Date: 20120905
  Transmission Date: 20130627
  Serious: Yes (Other)
  Sender: FDA-Public Use
  Company Number: AUR-APL-2012-03711

PATIENT
  Age: 14 Year
  Sex: Female

DRUGS (1)
  1. MONTELUKAST [Suspect]
     Indication: ASTHMA
     Dates: start: 20120813

REACTIONS (3)
  - Pruritus [None]
  - Erythema [None]
  - Dyspnoea [None]
